FAERS Safety Report 6698687-6 (Version None)
Quarter: 2010Q2

REPORT INFORMATION
  Report Type: 
  Country: None (occurrence: None)
  Receive Date: 20100427
  Receipt Date: 20090916
  Transmission Date: 20101027
  Serious: No
  Sender: FDA-Public Use
  Company Number: US-ASTRAZENECA-2009SE13615

PATIENT
  Age: 65 Year
  Sex: Male
  Weight: 77.1 kg

DRUGS (9)
  1. ZOMIG [Suspect]
     Route: 048
  2. EFFEXOR [Concomitant]
  3. TRAZODONE HCL [Concomitant]
  4. ATIVAN [Concomitant]
  5. LOVASTATIN [Concomitant]
  6. VERAPAMIL [Concomitant]
  7. LORTAB [Concomitant]
  8. FLEXERIL [Concomitant]
  9. SPIRIVA [Concomitant]

REACTIONS (1)
  - OSTEOPOROSIS [None]
